FAERS Safety Report 17621032 (Version 1)
Quarter: 2020Q2

REPORT INFORMATION
  Report Type: Report from Study
  Country: ES (occurrence: ES)
  Receive Date: 20200403
  Receipt Date: 20200403
  Transmission Date: 20200713
  Serious: Yes (Hospitalization)
  Sender: FDA-Public Use
  Company Number: ES-TEVA-2020-ES-1217540

PATIENT
  Age: 85 Year
  Sex: Female

DRUGS (8)
  1. DIGOXINA (770A) [Concomitant]
     Active Substance: DIGOXIN
     Route: 048
  2. PRAVASTATINA SODICA (7192SO) [Concomitant]
     Active Substance: PRAVASTATIN SODIUM
     Route: 048
     Dates: start: 20140620
  3. ACENOCUMAROL (220A) [Concomitant]
     Active Substance: ACENOCOUMAROL
     Indication: ATRIAL FIBRILLATION
     Route: 048
     Dates: start: 20090516, end: 20171103
  4. METAMIZOL (111A) [Interacting]
     Active Substance: METAMIZOL SODIUM
     Route: 048
  5. FUROSEMIDA (1615A) [Concomitant]
     Active Substance: FUROSEMIDE
     Route: 048
     Dates: start: 20131218, end: 20171103
  6. BISOPROLOL (2328A) [Concomitant]
     Active Substance: BISOPROLOL
     Route: 048
     Dates: end: 20171103
  7. TRAMADOL HIDROCLORURO (2389CH) [Suspect]
     Active Substance: TRAMADOL
     Route: 048
  8. CITALOPRAM [Interacting]
     Active Substance: CITALOPRAM HYDROBROMIDE
     Route: 048
     Dates: start: 20100701, end: 20171103

REACTIONS (2)
  - Drug interaction [Unknown]
  - Upper gastrointestinal haemorrhage [Recovered/Resolved]

NARRATIVE: CASE EVENT DATE: 20171103
